FAERS Safety Report 6119532-3 (Version None)
Quarter: 2009Q1

REPORT INFORMATION
  Report Type: 
  Country: None (occurrence: None)
  Receive Date: 20090316
  Receipt Date: 20090306
  Transmission Date: 20090719
  Serious: Yes (Hospitalization)
  Sender: FDA-Public Use
  Company Number: A0773261A

PATIENT
  Age: 55 Year
  Sex: Male
  Weight: 77.3 kg

DRUGS (4)
  1. AVANDIA [Suspect]
     Route: 065
     Dates: start: 20030818, end: 20070510
  2. GLUCOPHAGE [Concomitant]
     Dates: start: 20000408
  3. METFORMIN HCL [Concomitant]
     Dates: start: 20041211
  4. DIABETA [Concomitant]
     Dates: start: 20000428, end: 20041205

REACTIONS (6)
  - ARTERIOSCLEROSIS [None]
  - DYSPNOEA [None]
  - HYPERTENSION [None]
  - MYOCARDIAL INFARCTION [None]
  - PERIPHERAL VASCULAR DISORDER [None]
  - THROMBOSIS [None]
